FAERS Safety Report 19273998 (Version 1)
Quarter: 2021Q2

REPORT INFORMATION
  Report Type: Spontaneous
  Country: IN (occurrence: IN)
  Receive Date: 20210519
  Receipt Date: 20210519
  Transmission Date: 20210717
  Serious: Yes (Hospitalization, Other)
  Sender: FDA-Public Use
  Company Number: NVSC2021IN107177

PATIENT
  Age: 65 Year
  Sex: Male

DRUGS (5)
  1. ZOLEDRONIC ACID [Suspect]
     Active Substance: ZOLEDRONIC ACID
     Dosage: UNK
     Route: 065
     Dates: start: 201910, end: 201912
  2. ZOLEDRONIC ACID [Suspect]
     Active Substance: ZOLEDRONIC ACID
     Dosage: UNK
     Route: 065
     Dates: start: 202004, end: 202004
  3. ALECTINIB. [Concomitant]
     Active Substance: ALECTINIB
     Indication: PRODUCT USED FOR UNKNOWN INDICATION
     Dosage: UNK
     Route: 065
     Dates: start: 20180801
  4. LEVIPIL [Concomitant]
     Active Substance: LEVETIRACETAM
     Indication: PRODUCT USED FOR UNKNOWN INDICATION
     Dosage: 500 MG, BID
     Route: 065
  5. ZOLEDRONIC ACID [Suspect]
     Active Substance: ZOLEDRONIC ACID
     Indication: LUNG ADENOCARCINOMA
     Dosage: UNK
     Route: 065
     Dates: start: 201705, end: 20180721

REACTIONS (14)
  - Metastases to bone [Unknown]
  - Pericardial effusion [Unknown]
  - Osteosclerosis [Unknown]
  - Adenocarcinoma [Unknown]
  - Dyspnoea [Unknown]
  - Pain [Unknown]
  - Malignant neoplasm progression [Unknown]
  - Dizziness [Unknown]
  - Syncope [Unknown]
  - Pelvic pain [Unknown]
  - Metastases to central nervous system [Unknown]
  - Hepatic lesion [Unknown]
  - Arthralgia [Unknown]
  - Headache [Unknown]

NARRATIVE: CASE EVENT DATE: 20170810
